FAERS Safety Report 23588954 (Version 7)
Quarter: 2024Q4

REPORT INFORMATION
  Report Type: Spontaneous
  Country: US (occurrence: US)
  Receive Date: 20240304
  Receipt Date: 20241007
  Transmission Date: 20250114
  Serious: No
  Sender: NOVARTIS
  Company Number: US-002147023-NVSC2024US044793

PATIENT
  Sex: Female

DRUGS (2)
  1. MEKINIST [Suspect]
     Active Substance: TRAMETINIB DIMETHYL SULFOXIDE
     Indication: Ovarian cancer
     Dosage: 2 MG, QD
     Route: 048
     Dates: start: 202402
  2. MEKINIST [Suspect]
     Active Substance: TRAMETINIB DIMETHYL SULFOXIDE
     Dosage: 1 MG, QD (0.5 MG)
     Route: 048
     Dates: start: 202402

REACTIONS (6)
  - Diarrhoea [Unknown]
  - Fatigue [Recovering/Resolving]
  - Nausea [Unknown]
  - Vomiting [Unknown]
  - Visual impairment [Unknown]
  - Off label use [Unknown]
